FAERS Safety Report 7816043-1 (Version None)
Quarter: 2011Q4

REPORT INFORMATION
  Report Type: 
  Country: None (occurrence: None)
  Receive Date: 20111015
  Receipt Date: 20111005
  Transmission Date: 20120403
  Serious: Yes (Other)
  Sender: FDA-Public Use
  Company Number: AU-ASTRAZENECA-2011SE60136

PATIENT
  Age: 68 Year
  Sex: Female

DRUGS (1)
  1. ARIMIDEX [Suspect]
     Route: 048
     Dates: start: 20110701

REACTIONS (6)
  - FEELING ABNORMAL [None]
  - STRESS [None]
  - MEMORY IMPAIRMENT [None]
  - BONE NEOPLASM MALIGNANT [None]
  - NAUSEA [None]
  - ARTHRALGIA [None]
